FAERS Safety Report 18673533 (Version 5)
Quarter: 2022Q2

REPORT INFORMATION
  Report Type: Spontaneous
  Country: US (occurrence: US)
  Receive Date: 20201228
  Receipt Date: 20220503
  Transmission Date: 20220721
  Serious: No
  Sender: FDA-Public Use
  Company Number: US-PFIZER INC-2020511392

PATIENT
  Age: 37 Year
  Sex: Female

DRUGS (19)
  1. XELJANZ XR [Suspect]
     Active Substance: TOFACITINIB CITRATE
     Indication: Rheumatoid arthritis
     Dosage: 11 MG, 1X/DAY
     Route: 048
     Dates: start: 202011
  2. XELJANZ XR [Suspect]
     Active Substance: TOFACITINIB CITRATE
     Dosage: 11 MG(TAKE 1 TABLET (11 MG) BY MOUTH ONCE DAILY  )
     Route: 048
  3. ACTIVIA [Concomitant]
     Indication: Constipation
     Dosage: UNK
  4. COENZYME Q10 [Concomitant]
     Active Substance: DIETARY SUPPLEMENT\UBIDECARENONE
  5. MAGNESIUM [Concomitant]
     Active Substance: MAGNESIUM
  6. VITAMIN D3 [Concomitant]
     Active Substance: CHOLECALCIFEROL
  7. LEVOMEFOLIC ACID\METHYLCOBALAMIN\TURMERIC [Concomitant]
     Active Substance: LEVOMEFOLIC ACID\METHYLCOBALAMIN\TURMERIC
  8. BIOTIN [Concomitant]
     Active Substance: BIOTIN
  9. FLUOXETINE DR REDDYS [Concomitant]
  10. CLONAZEPAM [Concomitant]
     Active Substance: CLONAZEPAM
  11. NORTRIPTYLINE HYDROCHLORIDE [Concomitant]
     Active Substance: NORTRIPTYLINE HYDROCHLORIDE
  12. TYLENOL [Concomitant]
     Active Substance: ACETAMINOPHEN
  13. BOTOX [Concomitant]
     Active Substance: ONABOTULINUMTOXINA
  14. LIDOCAINE 5% EXTRA [Concomitant]
  15. CLOBETASOL PROPIONATE [Concomitant]
     Active Substance: CLOBETASOL PROPIONATE
  16. DICLOFENAC SODIUM [Concomitant]
     Active Substance: DICLOFENAC SODIUM
  17. ALBUTEROL [Concomitant]
     Active Substance: ALBUTEROL
  18. CYCLOBENZAPRINE HYDROCHLORIDE [Concomitant]
     Active Substance: CYCLOBENZAPRINE HYDROCHLORIDE
  19. BUPROPION HYDROCHLORIDE [Concomitant]
     Active Substance: BUPROPION HYDROCHLORIDE

REACTIONS (8)
  - Product dose omission in error [Unknown]
  - Vision blurred [Recovered/Resolved]
  - Abdominal pain upper [Unknown]
  - Constipation [Unknown]
  - Dry throat [Unknown]
  - Arthralgia [Recovering/Resolving]
  - Urine output decreased [Unknown]
  - Blister [Unknown]
